FAERS Safety Report 21909901 (Version 7)
Quarter: 2024Q3

REPORT INFORMATION
  Report Type: Spontaneous
  Country: US (occurrence: US)
  Receive Date: 20230125
  Receipt Date: 20240815
  Transmission Date: 20241017
  Serious: No
  Sender: PFIZER
  Company Number: US-PFIZER INC-202300029535

PATIENT
  Age: 15 Year
  Sex: Male
  Weight: 58.957 kg

DRUGS (7)
  1. GENOTROPIN [Suspect]
     Active Substance: SOMATROPIN
     Indication: Growth hormone deficiency
     Dosage: 1.2 MG, ALTERNATE DAY [HE TAKES 1.2MG ON EVEN DAYS AND 1.4MG ON ODD DAYS. SO, ABOUT 1.3MG A DAY]
  2. GENOTROPIN [Suspect]
     Active Substance: SOMATROPIN
     Indication: Hypopituitarism
     Dosage: 1.4 MG, ALTERNATE DAY [HE TAKES 1.2MG ON EVEN DAYS AND 1.4MG ON ODD DAYS. SO, ABOUT 1.3MG A DAY]
  3. GENOTROPIN [Suspect]
     Active Substance: SOMATROPIN
     Dosage: 1.3 MG, DAILY
  4. GENOTROPIN [Suspect]
     Active Substance: SOMATROPIN
     Dosage: 1.0 MG ALTERNATING DAYS WITH 0.8 MG DAILY MG/DAY
  5. GENOTROPIN [Suspect]
     Active Substance: SOMATROPIN
     Dosage: 1.0 MG ALTERNATING DAYS WITH 0.8 MG DAILY MG/DAY
  6. XELJANZ [Concomitant]
     Active Substance: TOFACITINIB CITRATE
     Dosage: 5 MG, 2X/DAY [5MG, TWICE A DAY]
  7. PIROXICAM [Concomitant]
     Active Substance: PIROXICAM
     Dosage: 10 MG, 1X/DAY [10MG, ONCE A DAY]

REACTIONS (5)
  - Poor quality device used [Unknown]
  - Accidental exposure to product [Unknown]
  - Exposure via skin contact [Unknown]
  - Device leakage [Unknown]
  - Drug dose omission by device [Unknown]
